FAERS Safety Report 20364301 (Version 1)
Quarter: 2022Q1

REPORT INFORMATION
  Report Type: Spontaneous
  Country: US (occurrence: None)
  Receive Date: 20220121
  Receipt Date: 20220121
  Transmission Date: 20220423
  Serious: Yes (Hospitalization)
  Sender: FDA-Public Use
  Company Number: None

PATIENT
  Age: 70 Year
  Sex: Female
  Weight: 108 kg

DRUGS (2)
  1. RIVAROXABAN [Suspect]
     Active Substance: RIVAROXABAN
     Indication: Peripheral arterial occlusive disease
     Dosage: 20 MG EVERY DAY PO?
     Route: 048
     Dates: start: 20210802, end: 20210827
  2. CLOPIDOGREL BISULFATE [Suspect]
     Active Substance: CLOPIDOGREL BISULFATE
     Dosage: 75 MG MG EVERY DAY PO??
     Route: 048
     Dates: start: 20210816, end: 20210827

REACTIONS (8)
  - Dyspnoea exertional [None]
  - Dyspnoea at rest [None]
  - Weight increased [None]
  - Swelling [None]
  - Melaena [None]
  - Anaemia [None]
  - Oesophagitis [None]
  - Gastric haemorrhage [None]

NARRATIVE: CASE EVENT DATE: 20210827
